FAERS Safety Report 5890953-7 (Version None)
Quarter: 2008Q3

REPORT INFORMATION
  Report Type: 
  Country: None (occurrence: None)
  Receive Date: 20080922
  Receipt Date: 20080915
  Transmission Date: 20090109
  Serious: Yes (Disabling)
  Sender: FDA-Public Use
  Company Number: A0748238A

PATIENT
  Age: 32 Year
  Sex: Female

DRUGS (1)
  1. ADVAIR DISKUS 100/50 [Suspect]
     Dosage: 3PUFF TWICE PER DAY
     Route: 055

REACTIONS (3)
  - GENERALISED OEDEMA [None]
  - HEADACHE [None]
  - OLIGURIA [None]
